FAERS Safety Report 7648593-5 (Version None)
Quarter: 2011Q3

REPORT INFORMATION
  Report Type: 
  Country: None (occurrence: None)
  Receive Date: 20110801
  Receipt Date: 20110730
  Transmission Date: 20111222
  Serious: Yes (Other)
  Sender: FDA-Public Use
  Company Number: US-PFIZER INC-2011173706

PATIENT
  Sex: Female
  Weight: 65.76 kg

DRUGS (6)
  1. CLONAZEPAM [Concomitant]
     Indication: ANXIETY
     Dosage: 1 MG, AS NEEDED
  2. EFFEXOR [Suspect]
     Dosage: 75 MG, 1X/DAY
     Route: 048
     Dates: start: 20110101, end: 20110101
  3. EFFEXOR [Suspect]
     Indication: ANXIETY
     Dosage: 37.5 MG, 1X/DAY
     Route: 048
     Dates: start: 20110601, end: 20110701
  4. ZOLOFT [Concomitant]
     Indication: ANXIETY
     Dosage: UNK
     Route: 048
  5. PRISTIQ [Suspect]
     Indication: DEPRESSION
     Dosage: 50 MG, 1X/DAY
     Route: 048
     Dates: start: 20110701
  6. EFFEXOR [Suspect]
     Dosage: 150 MG, 1X/DAY
     Dates: start: 20110101, end: 20110101

REACTIONS (12)
  - DRUG INEFFECTIVE [None]
  - DYSGEUSIA [None]
  - ASTHENIA [None]
  - BLOOD PRESSURE INCREASED [None]
  - MUSCLE SPASMS [None]
  - EYE IRRITATION [None]
  - MALAISE [None]
  - INSOMNIA [None]
  - NAUSEA [None]
  - FEELING JITTERY [None]
  - DIZZINESS [None]
  - ASTHENOPIA [None]
